FAERS Safety Report 25305673 (Version 1)
Quarter: 2025Q2

REPORT INFORMATION
  Report Type: Spontaneous
  Country: US (occurrence: None)
  Receive Date: 20250513
  Receipt Date: 20250513
  Transmission Date: 20250716
  Serious: Yes (Hospitalization)
  Sender: FDA-CTU
  Company Number: None

PATIENT
  Age: 6 Year
  Sex: Female
  Weight: 30.5 kg

DRUGS (4)
  1. CYCLOPHOSPHAMIDE [Suspect]
     Active Substance: CYCLOPHOSPHAMIDE
  2. CYTARABINE [Suspect]
     Active Substance: CYTARABINE
  3. METHOTREXATE [Suspect]
     Active Substance: METHOTREXATE
  4. THIOGUANINE ANHYDROUS [Suspect]
     Active Substance: THIOGUANINE ANHYDROUS

REACTIONS (6)
  - Febrile neutropenia [None]
  - Enterovirus test positive [None]
  - Human rhinovirus test positive [None]
  - Pleural effusion [None]
  - Respiratory failure [None]
  - Venoocclusive disease [None]

NARRATIVE: CASE EVENT DATE: 20250425
